FAERS Safety Report 4504227-X (Version None)
Quarter: 2004Q4

REPORT INFORMATION
  Report Type: 
  Country: None (occurrence: None)
  Receive Date: 20041116
  Receipt Date: 20041116
  Transmission Date: 20050328
  Serious: Yes (Hospitalization)
  Sender: FDA-Public Use
  Company Number: None

PATIENT
  Age: 50 Year
  Sex: Male
  Weight: 72.3487 kg

DRUGS (8)
  1. LISINOPRIL [Suspect]
     Indication: HYPERTENSION
     Dosage: 5 MG DAILY
     Dates: start: 20040415, end: 20040723
  2. NICOTINE [Concomitant]
  3. DILTIAZEM (TIAZAC) [Concomitant]
  4. COLESTIPOL HCL [Concomitant]
  5. GEMFIBROZIL [Concomitant]
  6. HYDROCHLOROTHIAZID [Concomitant]
  7. RANITIDINE HCL [Concomitant]
  8. SILDENAFIL CITRATE [Concomitant]

REACTIONS (2)
  - ANGIONEUROTIC OEDEMA [None]
  - OROPHARYNGEAL SWELLING [None]
